FAERS Safety Report 6201650-2 (Version None)
Quarter: 2009Q2

REPORT INFORMATION
  Report Type: 
  Country: None (occurrence: None)
  Receive Date: 20090526
  Receipt Date: 20080326
  Transmission Date: 20091009
  Serious: No
  Sender: FDA-Public Use
  Company Number: US-BRISTOL-MYERS SQUIBB COMPANY-14127716

PATIENT
  Age: 3 Decade
  Sex: Female

DRUGS (1)
  1. BARACLUDE [Suspect]
     Dosage: RESTARTED AFTER 3 MONTHS

REACTIONS (1)
  - LEUKOPENIA [None]
